FAERS Safety Report 23731358 (Version 4)
Quarter: 2025Q1

REPORT INFORMATION
  Report Type: Spontaneous
  Country: US (occurrence: US)
  Receive Date: 20240411
  Receipt Date: 20250113
  Transmission Date: 20250409
  Serious: Yes (Other)
  Sender: MYLAN
  Company Number: US-MYLANLABS-2024M1031394

PATIENT
  Age: 48 Year
  Sex: Female
  Weight: 104.33 kg

DRUGS (8)
  1. AMLODIPINE [Suspect]
     Active Substance: AMLODIPINE BESYLATE
     Indication: Product used for unknown indication
     Route: 065
     Dates: start: 2024
  2. LUMRYZ [Suspect]
     Active Substance: SODIUM OXYBATE
     Indication: Narcolepsy
     Dosage: 9 GRAM, QD (ONCE NIGHTLY)
     Route: 048
     Dates: start: 202110
  3. LUMRYZ [Suspect]
     Active Substance: SODIUM OXYBATE
     Indication: Cataplexy
     Dosage: 7.5 GRAM, QD (ONCE NIGHTLY)
     Route: 048
     Dates: start: 20230731
  4. LUMRYZ [Suspect]
     Active Substance: SODIUM OXYBATE
     Dosage: 7.5 GRAM, PM (ONCE NIGHTLY)
     Route: 048
     Dates: start: 2024
  5. ALLEGRA [Concomitant]
     Active Substance: FEXOFENADINE HYDROCHLORIDE
     Route: 065
  6. FLONASE [Concomitant]
     Active Substance: FLUTICASONE PROPIONATE
     Route: 065
  7. IRBESARTAN [Concomitant]
     Active Substance: IRBESARTAN
     Route: 065
     Dates: start: 2024
  8. ZEPBOUND [Concomitant]
     Active Substance: TIRZEPATIDE
     Indication: Decreased appetite
     Route: 065

REACTIONS (30)
  - Gallbladder hypofunction [Recovered/Resolved]
  - Thyroid operation [Unknown]
  - Nephrolithiasis [Not Recovered/Not Resolved]
  - Parathyroid gland enlargement [Unknown]
  - Abdominal distension [Recovered/Resolved]
  - Stress [Not Recovered/Not Resolved]
  - COVID-19 [Unknown]
  - Constipation [Not Recovered/Not Resolved]
  - Dry eye [Recovered/Resolved]
  - Brain fog [Recovered/Resolved]
  - Enuresis [Unknown]
  - Diarrhoea [Not Recovered/Not Resolved]
  - Blister [Unknown]
  - Sleep disorder [Recovered/Resolved]
  - Food craving [Recovered/Resolved]
  - Flank pain [Not Recovered/Not Resolved]
  - Ill-defined disorder [Unknown]
  - Renal cyst [Not Recovered/Not Resolved]
  - Oedema [Unknown]
  - Weight decreased [Unknown]
  - Malaise [Not Recovered/Not Resolved]
  - Dry mouth [Recovered/Resolved]
  - Insomnia [Not Recovered/Not Resolved]
  - Nocturia [Unknown]
  - Terminal insomnia [Unknown]
  - Middle insomnia [Unknown]
  - Abdominal pain [Not Recovered/Not Resolved]
  - Weight increased [Recovered/Resolved]
  - Micturition urgency [Unknown]
  - Pain [Not Recovered/Not Resolved]

NARRATIVE: CASE EVENT DATE: 20220401
